FAERS Safety Report 10889120 (Version 2)
Quarter: 2015Q2

REPORT INFORMATION
  Report Type: Spontaneous
  Country: US (occurrence: US)
  Receive Date: 20150305
  Receipt Date: 20150622
  Transmission Date: 20150821
  Serious: Yes (Hospitalization, Other)
  Sender: FDA-Public Use
  Company Number: US-MALLINCKRODT-T201501402

PATIENT
  Age: 2 Year
  Sex: Female

DRUGS (5)
  1. LABETALOL [Concomitant]
     Active Substance: LABETALOL\LABETALOL HYDROCHLORIDE
     Dosage: UNK
  2. H.P. ACTHAR [Suspect]
     Active Substance: CORTICOTROPIN
     Indication: NEPHROTIC SYNDROME
     Dosage: 20 UNITS TWICE WKLY
     Route: 058
     Dates: start: 20150219, end: 20150522
  3. H.P. ACTHAR [Suspect]
     Active Substance: CORTICOTROPIN
     Indication: LUPUS NEPHRITIS
     Dosage: 20 UNITS THREE TIMES WEEKLY
     Route: 058
     Dates: start: 20150131, end: 201502
  4. NORVASC [Concomitant]
     Active Substance: AMLODIPINE BESYLATE
     Dosage: UNK
  5. CELLCEPT [Concomitant]
     Active Substance: MYCOPHENOLATE MOFETIL\MYCOPHENOLATE MOFETIL HYDROCHLORIDE
     Indication: PRODUCT USED FOR UNKNOWN INDICATION
     Dosage: UNK
     Route: 065
     Dates: end: 201502

REACTIONS (6)
  - Respiratory distress [Recovered/Resolved]
  - Renal impairment [Not Recovered/Not Resolved]
  - Fluid overload [Recovered/Resolved]
  - Ear infection [Unknown]
  - Pneumonia [Unknown]
  - Respiratory syncytial virus infection [Unknown]

NARRATIVE: CASE EVENT DATE: 201502
